FAERS Safety Report 14187039 (Version 5)
Quarter: 2020Q1

REPORT INFORMATION
  Report Type: Spontaneous
  Country: US (occurrence: US)
  Receive Date: 20171114
  Receipt Date: 20200127
  Transmission Date: 20200409
  Serious: No
  Sender: FDA-Public Use
  Company Number: US-PFIZER INC-2017473288

PATIENT
  Age: 78 Year
  Sex: Female

DRUGS (1)
  1. IBRANCE [Suspect]
     Active Substance: PALBOCICLIB
     Indication: BREAST CANCER
     Dosage: 125 MG, UNK
     Dates: start: 20170801

REACTIONS (10)
  - Sleep disorder [Unknown]
  - Irritability [Unknown]
  - Hair disorder [Unknown]
  - Neoplasm progression [Unknown]
  - Dry eye [Unknown]
  - Contusion [Unknown]
  - Skin atrophy [Unknown]
  - Weight increased [Unknown]
  - Lacrimation increased [Unknown]
  - Increased appetite [Unknown]
